FAERS Safety Report 4581734-5 (Version None)
Quarter: 2005Q1

REPORT INFORMATION
  Report Type: 
  Country: None (occurrence: None)
  Receive Date: 20050214
  Receipt Date: 20040220
  Transmission Date: 20050727
  Serious: No
  Sender: FDA-Public Use
  Company Number: US-GLAXOSMITHKLINE-A0499204A

PATIENT
  Age: 64 Year
  Sex: Female

DRUGS (7)
  1. LAMICTAL [Suspect]
     Indication: BIPOLAR DISORDER
     Dosage: 100MG PER DAY
     Route: 048
     Dates: start: 20031101, end: 20040215
  2. ZETIA [Concomitant]
  3. CARDIZEM [Concomitant]
  4. HYDROCHLOROTHIAZIDE [Concomitant]
  5. TOPAMAX [Concomitant]
  6. FOSAMAX [Concomitant]
  7. ATACAND [Concomitant]

REACTIONS (1)
  - BLOOD PRESSURE INCREASED [None]
